FAERS Safety Report 6526305-6 (Version None)
Quarter: 2009Q4

REPORT INFORMATION
  Report Type: 
  Country: None (occurrence: None)
  Receive Date: 20091224
  Receipt Date: 20091211
  Transmission Date: 20100525
  Serious: Yes (Other)
  Sender: FDA-Public Use
  Company Number: 459711

PATIENT
  Sex: Female

DRUGS (1)
  1. DESFERRIOXAMINE MESILATE (DEFEROXAMINE) [Suspect]

REACTIONS (3)
  - EXFOLIATIVE RASH [None]
  - HAEMORRHAGE [None]
  - PRURITUS [None]
